FAERS Safety Report 16026454 (Version 1)
Quarter: 2019Q1

REPORT INFORMATION
  Report Type: Spontaneous
  Country: US (occurrence: US)
  Receive Date: 20190302
  Receipt Date: 20190302
  Transmission Date: 20190418
  Serious: No
  Sender: FDA-Public Use
  Company Number: US-NOVOPROD-631316

PATIENT
  Age: 70 Year
  Sex: Female

DRUGS (3)
  1. VICTOZA [Suspect]
     Active Substance: LIRAGLUTIDE
     Indication: TYPE 2 DIABETES MELLITUS
     Dosage: UNK
     Route: 058
     Dates: start: 201809, end: 2018
  2. VICTOZA [Suspect]
     Active Substance: LIRAGLUTIDE
     Indication: OBESITY
     Dosage: 1.8 MG, QD
     Route: 058
     Dates: start: 2018, end: 2018
  3. VICTOZA [Suspect]
     Active Substance: LIRAGLUTIDE
     Dosage: EVERY OTHER DAY
     Route: 058
     Dates: start: 2018

REACTIONS (2)
  - Osteoarthritis [Recovered/Resolved]
  - Product use issue [Unknown]

NARRATIVE: CASE EVENT DATE: 2018
